FAERS Safety Report 12590978 (Version 1)
Quarter: 2016Q3

REPORT INFORMATION
  Report Type: Spontaneous
  Country: US (occurrence: US)
  Receive Date: 20160726
  Receipt Date: 20160726
  Transmission Date: 20161109
  Serious: No
  Sender: FDA-Public Use
  Company Number: US-UNITED THERAPEUTICS-UNT-2016-007059

PATIENT
  Age: 15 Year
  Sex: Female
  Weight: 63.49 kg

DRUGS (3)
  1. LETAIRIS [Concomitant]
     Active Substance: AMBRISENTAN
     Indication: PRODUCT USED FOR UNKNOWN INDICATION
  2. ADCIRCA [Concomitant]
     Active Substance: TADALAFIL
     Indication: PRODUCT USED FOR UNKNOWN INDICATION
  3. ORENITRAM [Suspect]
     Active Substance: TREPROSTINIL
     Indication: PULMONARY HYPERTENSION
     Dosage: 2 MG, TID
     Route: 048
     Dates: start: 20141105

REACTIONS (5)
  - Nasopharyngitis [Unknown]
  - Asthma [Unknown]
  - Seasonal allergy [Unknown]
  - Conjunctivitis [Unknown]
  - Cough [Unknown]

NARRATIVE: CASE EVENT DATE: 201604
